FAERS Safety Report 15454719 (Version 1)
Quarter: 2018Q4

REPORT INFORMATION
  Report Type: Report from Study
  Country: US (occurrence: US)
  Receive Date: 20181002
  Receipt Date: 20181002
  Transmission Date: 20190204
  Serious: Yes (Hospitalization)
  Sender: FDA-Public Use
  Company Number: PHEH2018US040821

PATIENT
  Age: 14 Year
  Sex: Male

DRUGS (1)
  1. KYMRIAH [Suspect]
     Active Substance: TISAGENLECLEUCEL
     Indication: ACUTE LYMPHOCYTIC LEUKAEMIA
     Dosage: ONCE/SINGLE
     Route: 042
     Dates: start: 20160119

REACTIONS (5)
  - Malaise [Unknown]
  - Ill-defined disorder [Unknown]
  - Immune system disorder [Unknown]
  - Salmonellosis [Unknown]
  - Escherichia infection [Unknown]

NARRATIVE: CASE EVENT DATE: 201809
